FAERS Safety Report 6511503-8 (Version None)
Quarter: 2009Q4

REPORT INFORMATION
  Report Type: 
  Country: None (occurrence: None)
  Receive Date: 20091222
  Receipt Date: 20090414
  Transmission Date: 20100525
  Serious: No
  Sender: FDA-Public Use
  Company Number: US-ASTRAZENECA-2009UW09365

PATIENT
  Age: 72 Year
  Sex: Female
  Weight: 54.4 kg

DRUGS (4)
  1. CRESTOR [Suspect]
     Route: 048
  2. TYLENOL (CAPLET) [Concomitant]
     Indication: ARTHRITIS
  3. HTN MEDICATION [Concomitant]
     Indication: HYPERTENSION
  4. ALLERGY MEDICATION [Concomitant]
     Indication: HYPERSENSITIVITY

REACTIONS (2)
  - MALAISE [None]
  - MUSCLE SPASMS [None]
